FAERS Safety Report 8010617-3 (Version None)
Quarter: 2011Q4

REPORT INFORMATION
  Report Type: 
  Country: None (occurrence: None)
  Receive Date: 20111222
  Receipt Date: 20111213
  Transmission Date: 20120403
  Serious: Yes (Other)
  Sender: FDA-Public Use
  Company Number: TPA2011A08440

PATIENT
  Age: 60 Year
  Sex: Male

DRUGS (2)
  1. ^A SULFONYLUREA^ (DRUG USED IN DIABETES) [Concomitant]
  2. ACTOS [Suspect]
     Indication: TYPE 2 DIABETES MELLITUS
     Dosage: 15 MG ; 30 MG
     Dates: end: 20051213

REACTIONS (3)
  - METASTASES TO LUNG [None]
  - RENAL CANCER [None]
  - BLADDER CANCER [None]
